FAERS Safety Report 5176203-8 (Version None)
Quarter: 2006Q4

REPORT INFORMATION
  Report Type: 
  Country: None (occurrence: None)
  Receive Date: 20061215
  Receipt Date: 20060623
  Transmission Date: 20070319
  Serious: No
  Sender: FDA-Public Use
  Company Number: US-AMGEN-KDL184178

PATIENT
  Sex: Female

DRUGS (1)
  1. ENBREL [Suspect]
     Indication: RHEUMATOID ARTHRITIS
     Route: 058
     Dates: start: 20060418

REACTIONS (5)
  - ERYTHEMA [None]
  - INJECTION SITE REACTION [None]
  - INSOMNIA [None]
  - SINUS CONGESTION [None]
  - SINUS HEADACHE [None]
